FAERS Safety Report 18551971 (Version 3)
Quarter: 2021Q1

REPORT INFORMATION
  Report Type: Spontaneous
  Country: US (occurrence: US)
  Receive Date: 20201126
  Receipt Date: 20210224
  Transmission Date: 20210419
  Serious: No
  Sender: FDA-Public Use
  Company Number: US-BIOGEN-2020BI00950446

PATIENT
  Sex: Male

DRUGS (1)
  1. TYSABRI [Suspect]
     Active Substance: NATALIZUMAB
     Indication: MULTIPLE SCLEROSIS
     Route: 042
     Dates: start: 20200309

REACTIONS (6)
  - Dysstasia [Unknown]
  - Muscular weakness [Unknown]
  - Loss of control of legs [Unknown]
  - Posture abnormal [Unknown]
  - Tremor [Unknown]
  - Cerebral disorder [Unknown]
